FAERS Safety Report 6349157-6 (Version None)
Quarter: 2009Q3

REPORT INFORMATION
  Report Type: 
  Country: None (occurrence: None)
  Receive Date: 20090911
  Receipt Date: 20090706
  Transmission Date: 20100115
  Serious: No
  Sender: FDA-Public Use
  Company Number: US-BAYER-200925714NA

PATIENT
  Age: 21 Year
  Sex: Female
  Weight: 57 kg

DRUGS (1)
  1. YAZ [Suspect]
     Indication: VAGINAL HAEMORRHAGE
     Route: 048
     Dates: start: 20090616

REACTIONS (1)
  - VAGINAL HAEMORRHAGE [None]
